FAERS Safety Report 10156989 (Version 1)
Quarter: 2014Q2

REPORT INFORMATION
  Report Type: Spontaneous
  Country: US (occurrence: US)
  Receive Date: 20140507
  Receipt Date: 20140507
  Transmission Date: 20141212
  Serious: Yes (Other)
  Sender: FDA-Public Use
  Company Number: US-SA-2014SA058853

PATIENT
  Age: 45 Year
  Sex: Male
  Weight: 96.6 kg

DRUGS (7)
  1. THYMOGLOBULIN [Suspect]
     Indication: PROPHYLAXIS AGAINST TRANSPLANT REJECTION
     Dosage: 3 DOSES DAILY
     Route: 065
     Dates: start: 20131028, end: 20131030
  2. SEVELAMER [Concomitant]
     Indication: BLOOD PHOSPHORUS ABNORMAL
     Route: 048
  3. LISINOPRIL [Concomitant]
     Indication: HYPERTENSION
     Route: 048
  4. ATENOLOL [Concomitant]
     Indication: HYPERTENSION
     Route: 048
  5. ALLOPURINOL [Concomitant]
     Indication: HYPERTENSION
     Route: 048
  6. LEVOTHYROXINE [Concomitant]
     Indication: HYPOTHYROIDISM
     Route: 048
  7. FUROSEMIDE [Concomitant]

REACTIONS (2)
  - Transplant dysfunction [Recovered/Resolved]
  - Therapeutic response decreased [Unknown]
